FAERS Safety Report 9955549 (Version 2)
Quarter: 2014Q1

REPORT INFORMATION
  Report Type: Report from Study
  Country: US (occurrence: US)
  Receive Date: 20140304
  Receipt Date: 20140304
  Transmission Date: 20141002
  Serious: No
  Sender: FDA-Public Use
  Company Number: US-ABBVIE-10P-163-0679723-00

PATIENT
  Age: 56 Year
  Sex: Female
  Weight: 108.05 kg

DRUGS (1)
  1. HUMIRA 40 MG/0.8 ML PEN [Suspect]
     Indication: RHEUMATOID ARTHRITIS
     Dates: start: 20101003

REACTIONS (6)
  - Headache [Unknown]
  - Complex regional pain syndrome [Unknown]
  - Pain in extremity [Unknown]
  - Dizziness [Unknown]
  - Nausea [Unknown]
  - Respiratory tract infection [Unknown]
